FAERS Safety Report 23446228 (Version 3)
Quarter: 2024Q1

REPORT INFORMATION
  Report Type: Spontaneous
  Country: US (occurrence: US)
  Receive Date: 20240126
  Receipt Date: 20240322
  Transmission Date: 20240410
  Serious: Yes (Hospitalization)
  Sender: FDA-Public Use
  Company Number: US-BAYER-2024A006981

PATIENT
  Age: 60 Year
  Sex: Male
  Weight: 74.8 kg

DRUGS (5)
  1. CIPRO [Suspect]
     Active Substance: CIPROFLOXACIN HYDROCHLORIDE
     Indication: Prostatitis
     Dosage: 500 MG, BID
     Route: 048
     Dates: start: 20231201, end: 20231208
  2. CIPRO [Suspect]
     Active Substance: CIPROFLOXACIN HYDROCHLORIDE
     Indication: Urinary tract infection
  3. CIPRO [Suspect]
     Active Substance: CIPROFLOXACIN HYDROCHLORIDE
     Indication: Tendon disorder
  4. BACTRIM DS [Concomitant]
     Active Substance: SULFAMETHOXAZOLE\TRIMETHOPRIM
     Indication: Prostatitis
     Dates: start: 20231208, end: 20240113
  5. ASPIRIN [Concomitant]
     Active Substance: ASPIRIN

REACTIONS (7)
  - Tendon disorder [Not Recovered/Not Resolved]
  - Tendon rupture [Recovered/Resolved with Sequelae]
  - Fall [None]
  - Contusion [Not Recovered/Not Resolved]
  - Blood pressure increased [None]
  - Drug hypersensitivity [None]
  - Arthralgia [None]

NARRATIVE: CASE EVENT DATE: 20231201
